FAERS Safety Report 4290090-1 (Version None)
Quarter: 2004Q1

REPORT INFORMATION
  Report Type: 
  Country: None (occurrence: None)
  Receive Date: 20040209
  Receipt Date: 20040204
  Transmission Date: 20041129
  Serious: Yes (Life-Threatening, Hospitalization)
  Sender: FDA-Public Use
  Company Number: FRWYE555704FEB04

PATIENT
  Age: 44 Year
  Sex: Male

DRUGS (3)
  1. RAPAMUNE [Suspect]
     Indication: PROPHYLAXIS AGAINST TRANSPLANT REJECTION
     Dosage: 7 MG 1X PER 1 DAY; ORAL
     Route: 048
     Dates: start: 20030429
  2. CELLCEPT [Concomitant]
  3. PREDNISONE [Concomitant]

REACTIONS (10)
  - ACUTE PULMONARY OEDEMA [None]
  - BLOOD PRESSURE ABNORMAL [None]
  - DILATATION ATRIAL [None]
  - DILATATION VENTRICULAR [None]
  - HAEMOPTYSIS [None]
  - HEART RATE INCREASED [None]
  - LEFT VENTRICULAR FAILURE [None]
  - OEDEMA PERIPHERAL [None]
  - PYREXIA [None]
  - VENTRICULAR HYPERTROPHY [None]
